FAERS Safety Report 9603169 (Version 1)
Quarter: 2013Q4

REPORT INFORMATION
  Report Type: Report from Study
  Country: DE (occurrence: DE)
  Receive Date: 20131007
  Receipt Date: 20131007
  Transmission Date: 20140711
  Serious: Yes (Other)
  Sender: FDA-Public Use
  Company Number: PHHY2013DE109848

PATIENT
  Sex: Male
  Weight: 103 kg

DRUGS (6)
  1. LAF237 [Suspect]
     Indication: TYPE 2 DIABETES MELLITUS
     Dosage: 1 DF, (850/50 MG) PER DAY
     Dates: start: 2011, end: 20130314
  2. GLIBENCLAMIDE [Suspect]
     Indication: TYPE 2 DIABETES MELLITUS
     Dosage: 10 MG, PER DAY
     Dates: start: 2011, end: 20130314
  3. LANTUS [Suspect]
     Indication: TYPE 2 DIABETES MELLITUS
     Dosage: 26 IU, PER DAY
     Dates: start: 20130314, end: 20130326
  4. LANTUS [Suspect]
     Dosage: 14 IU, PER DAY
     Dates: start: 20130326, end: 20130725
  5. RAMIPRIL [Suspect]
     Indication: HYPERTENSION
     Dosage: 5 MG, PER DAY
     Dates: start: 20130314
  6. FUROSEMIDE [Suspect]
     Indication: HYPERTENSION
     Dosage: 40 MG, PER DAY
     Dates: start: 20130314

REACTIONS (3)
  - Autonomic neuropathy [Unknown]
  - Diabetic retinopathy [Unknown]
  - Glycosylated haemoglobin increased [Recovered/Resolved]
